FAERS Safety Report 6569509-9 (Version None)
Quarter: 2010Q1

REPORT INFORMATION
  Report Type: 
  Country: None (occurrence: None)
  Receive Date: 20100204
  Receipt Date: 20100126
  Transmission Date: 20100710
  Serious: Yes (Hospitalization)
  Sender: FDA-Public Use
  Company Number: NL-ELI_LILLY_AND_COMPANY-NL201001002513

PATIENT
  Sex: Female
  Weight: 55 kg

DRUGS (10)
  1. FORTEO [Suspect]
     Indication: OSTEOPOROSIS
     Dosage: 20 UG, DAILY (1/D)
     Route: 058
     Dates: start: 20091111
  2. SELOKEEN [Concomitant]
     Dosage: 50 MG, DAILY (1/D)
     Route: 048
  3. COZAAR [Concomitant]
     Dosage: 50 MG, DAILY (1/D)
     Route: 048
  4. PREDNISOLON [Concomitant]
     Dosage: 5 MG, DAILY (1/D)
     Route: 048
  5. PLAVIX [Concomitant]
     Dosage: 75 MG, DAILY (1/D)
     Route: 048
  6. LIPITOR [Concomitant]
     Dosage: 40 MG, DAILY (1/D)
     Route: 048
  7. NIFEDIPINE [Concomitant]
     Dosage: 30 MG, DAILY (1/D)
     Route: 048
  8. SERETIDE [Concomitant]
     Dosage: 1 D/F, 2/D
     Route: 055
  9. ENBREL [Concomitant]
     Dosage: UNK, WEEKLY (1/W)
     Route: 058
  10. NEXIUM [Concomitant]
     Dosage: 40 MG, DAILY (1/D)
     Route: 048

REACTIONS (2)
  - ARRHYTHMIA [None]
  - HEADACHE [None]
